FAERS Safety Report 8228215-5 (Version None)
Quarter: 2012Q1

REPORT INFORMATION
  Report Type: 
  Country: None (occurrence: None)
  Receive Date: 20120322
  Receipt Date: 20111202
  Transmission Date: 20120608
  Serious: Yes (Other)
  Sender: FDA-Public Use
  Company Number: US-BRISTOL-MYERS SQUIBB COMPANY-16266827

PATIENT
  Age: 50 Year
  Sex: Male

DRUGS (1)
  1. ERBITUX [Suspect]
     Dates: start: 20111201

REACTIONS (6)
  - HEADACHE [None]
  - VOMITING [None]
  - BLOOD PRESSURE INCREASED [None]
  - FATIGUE [None]
  - PYREXIA [None]
  - NAUSEA [None]
